FAERS Safety Report 7928552-5 (Version None)
Quarter: 2011Q4

REPORT INFORMATION
  Report Type: 
  Country: None (occurrence: None)
  Receive Date: 20111118
  Receipt Date: 20111107
  Transmission Date: 20120403
  Serious: Yes (Other)
  Sender: FDA-Public Use
  Company Number: SK-BRISTOL-MYERS SQUIBB COMPANY-16217663

PATIENT
  Age: 62 Year
  Sex: Male

DRUGS (2)
  1. WARFARIN SODIUM [Suspect]
     Indication: ATRIAL FIBRILLATION
  2. WARFARIN SODIUM [Suspect]
     Indication: CORONARY ARTERY DISEASE

REACTIONS (3)
  - INTERNATIONAL NORMALISED RATIO INCREASED [None]
  - COLONIC HAEMATOMA [None]
  - ALKALOSIS HYPOKALAEMIC [None]
